FAERS Safety Report 8134708-1 (Version None)
Quarter: 2012Q1

REPORT INFORMATION
  Report Type: 
  Country: None (occurrence: None)
  Receive Date: 20120214
  Receipt Date: 20120208
  Transmission Date: 20120608
  Serious: Yes (Hospitalization)
  Sender: FDA-Public Use
  Company Number: CA-ROXANE LABORATORIES, INC.-2012-RO-00621RO

PATIENT
  Age: 3 Year
  Sex: Male

DRUGS (1)
  1. RISPERIDONE [Suspect]

REACTIONS (2)
  - EXTRAPYRAMIDAL DISORDER [None]
  - ACCIDENTAL POISONING [None]
